FAERS Safety Report 6816551-6 (Version None)
Quarter: 2010Q3

REPORT INFORMATION
  Report Type: 
  Country: None (occurrence: None)
  Receive Date: 20100706
  Receipt Date: 20100624
  Transmission Date: 20110219
  Serious: Yes (Hospitalization, Other)
  Sender: FDA-Public Use
  Company Number: PHHY2010IT41929

PATIENT
  Sex: Female

DRUGS (6)
  1. SANDIMMUNE [Suspect]
     Indication: CHRONIC GRAFT VERSUS HOST DISEASE
     Dosage: 50 MG/DAY
     Dates: start: 20080601, end: 20100518
  2. SIMVASTATIN [Interacting]
     Indication: HYPERCHOLESTEROLAEMIA
     Dosage: 20 MG DAILY
     Route: 048
     Dates: start: 20100502, end: 20100518
  3. BACTRIM [Concomitant]
     Dosage: UNK
     Route: 048
  4. ANTRA [Concomitant]
     Dosage: UNK
     Route: 048
  5. OPTIVE LUBRICANT EYE DROPS [Concomitant]
     Indication: CHRONIC GRAFT VERSUS HOST DISEASE
  6. AUTOSIERO EYE DROPS [Concomitant]
     Indication: CHRONIC GRAFT VERSUS HOST DISEASE

REACTIONS (7)
  - ASPARTATE AMINOTRANSFERASE INCREASED [None]
  - BLOOD CREATINE PHOSPHOKINASE MB INCREASED [None]
  - HIGH DENSITY LIPOPROTEIN INCREASED [None]
  - HYPERPYREXIA [None]
  - MUSCULAR WEAKNESS [None]
  - MYALGIA [None]
  - RHABDOMYOLYSIS [None]
